FAERS Safety Report 8091939-7 (Version None)
Quarter: 2012Q1

REPORT INFORMATION
  Report Type: 
  Country: None (occurrence: None)
  Receive Date: 20120129
  Receipt Date: 20111207
  Transmission Date: 20120608
  Serious: No
  Sender: FDA-Public Use
  Company Number: US-ABBOTT-11P-163-0881440-00

PATIENT
  Age: 56 Year
  Sex: Female

DRUGS (6)
  1. FOLIC ACID [Concomitant]
     Indication: PRODUCT USED FOR UNKNOWN INDICATION
     Dosage: 1 TABLET DAILY
  2. SUBOXONE [Concomitant]
     Indication: PAIN
     Dosage: DAILY
  3. NAPROXEN [Concomitant]
     Indication: PAIN
     Dosage: 1 TAB TWICE DAILY
  4. METHOTREXATE [Concomitant]
     Dosage: ON HOLD
  5. HUMIRA [Suspect]
     Indication: RHEUMATOID ARTHRITIS
     Dates: start: 20111028
  6. METHOTREXATE [Suspect]
     Indication: PRODUCT USED FOR UNKNOWN INDICATION

REACTIONS (2)
  - NAUSEA [None]
  - DRUG INEFFECTIVE [None]
